FAERS Safety Report 18308265 (Version 1)
Quarter: 2020Q3

REPORT INFORMATION
  Report Type: Spontaneous
  Country: US (occurrence: US)
  Receive Date: 20200924
  Receipt Date: 20200924
  Transmission Date: 20201103
  Serious: Yes (Death, Disabling, Other)
  Sender: FDA-Public Use
  Company Number: US-PURDUE-USA-2020-0167500

PATIENT
  Sex: Male

DRUGS (1)
  1. OXYCONTIN [Suspect]
     Active Substance: OXYCODONE HYDROCHLORIDE
     Indication: PAIN
     Dosage: 30 MG, UNK
     Route: 048
     Dates: start: 20020401

REACTIONS (10)
  - Mental impairment [Unknown]
  - Drug withdrawal syndrome [Unknown]
  - Drug abuse [Unknown]
  - Intrathecal pump insertion [Unknown]
  - Pneumonia [Unknown]
  - Drug dependence [Unknown]
  - Death [Fatal]
  - Pain [Unknown]
  - Disability [Unknown]
  - Suicide attempt [Unknown]

NARRATIVE: CASE EVENT DATE: 201805
